FAERS Safety Report 5272334-2 (Version None)
Quarter: 2007Q1

REPORT INFORMATION
  Report Type: 
  Country: None (occurrence: None)
  Receive Date: 20070320
  Receipt Date: 20070320
  Transmission Date: 20070707
  Serious: Yes (Hospitalization)
  Sender: FDA-Public Use
  Company Number: None

PATIENT
  Sex: Male
  Weight: 85.7 kg

DRUGS (4)
  1. FAMOTIDINE [Suspect]
     Indication: STRESS ULCER
     Dosage: 20MG Q12H (IV)
     Route: 042
     Dates: start: 20060616, end: 20060622
  2. HEPARIN [Suspect]
     Indication: ANTICOAGULANT THERAPY
     Dosage: CONTINUOUS INFUSION
     Dates: start: 20060609, end: 20060615
  3. ZOSYN [Concomitant]
  4. IAPB [Concomitant]

REACTIONS (2)
  - EPISTAXIS [None]
  - THROMBOCYTOPENIA [None]
